FAERS Safety Report 23837056 (Version 1)
Quarter: 2024Q2

REPORT INFORMATION
  Report Type: Spontaneous
  Country: US (occurrence: US)
  Receive Date: 20240509
  Receipt Date: 20240509
  Transmission Date: 20240716
  Serious: No
  Sender: FDA-Public Use
  Company Number: US-TEVA-VS-3182044

PATIENT

DRUGS (1)
  1. ACTIQ [Suspect]
     Active Substance: FENTANYL CITRATE
     Indication: Product used for unknown indication
     Dosage: SEVERAL YEARS IN THE EARLY 2000S
     Route: 065
     Dates: start: 2000

REACTIONS (2)
  - Dental caries [Not Recovered/Not Resolved]
  - Road traffic accident [Unknown]
